FAERS Safety Report 14711541 (Version 1)
Quarter: 2018Q2

REPORT INFORMATION
  Report Type: Spontaneous
  Country: US (occurrence: US)
  Receive Date: 20180403
  Receipt Date: 20180403
  Transmission Date: 20180711
  Serious: No
  Sender: FDA-Public Use
  Company Number: US-MYLANLABS-2018M1016754

PATIENT
  Sex: Female

DRUGS (1)
  1. CLOBETASOL PROPIONATE FOAM [Suspect]
     Active Substance: CLOBETASOL PROPIONATE
     Indication: SEBORRHOEIC DERMATITIS
     Dosage: UNK UNK, BID (TWICE A DAY TO SCALP AND FACE)
     Route: 061

REACTIONS (3)
  - Rash [Recovering/Resolving]
  - Off label use [Recovering/Resolving]
  - Product quality issue [Unknown]
